FAERS Safety Report 8556138-0 (Version None)
Quarter: 2012Q3

REPORT INFORMATION
  Report Type: 
  Country: None (occurrence: None)
  Receive Date: 20120719
  Receipt Date: 20120710
  Transmission Date: 20120928
  Serious: Yes (Life-Threatening)
  Sender: FDA-Public Use
  Company Number: TCI2011A06141

PATIENT
  Age: 77 Year
  Sex: Male

DRUGS (5)
  1. VOGLIBOSE [Concomitant]
  2. MAIBASTAN (PRAVASTATIN SODIUM) [Concomitant]
  3. ACTOS [Suspect]
     Indication: DIABETES MELLITUS
     Dosage: 30 MG (30 MG, 1 IN 1 D)
     Route: 048
     Dates: start: 20050204, end: 20110830
  4. BASTAMION (VOGLIBOSE) [Concomitant]
  5. PIOGLITAZONE [Suspect]
     Indication: DIABETES MELLITUS
     Dosage: 30 MG (30 MG, 1 IN 1 D)
     Route: 048
     Dates: start: 20110831, end: 20111104

REACTIONS (2)
  - BLOOD URINE PRESENT [None]
  - RENAL NEOPLASM [None]
